FAERS Safety Report 6885688-8 (Version None)
Quarter: 2010Q3

REPORT INFORMATION
  Report Type: 
  Country: None (occurrence: None)
  Receive Date: 20100729
  Receipt Date: 20080728
  Transmission Date: 20110219
  Serious: No
  Sender: FDA-Public Use
  Company Number: US-PFIZER INC-2008050606

PATIENT
  Sex: Female

DRUGS (9)
  1. CELEBREX [Suspect]
     Indication: ARTHRITIS
     Dates: start: 20080101
  2. SIMVASTATIN [Concomitant]
  3. EVISTA [Concomitant]
  4. NYTOL [Concomitant]
  5. ZETIA [Concomitant]
  6. TRICOR [Concomitant]
  7. HYDROCHLOROTHIAZIDE [Concomitant]
  8. ACETYLSALICYLIC ACID SRT [Concomitant]
  9. MULTI-VITAMINS [Concomitant]

REACTIONS (1)
  - BACK PAIN [None]
